FAERS Safety Report 8840461 (Version 3)
Quarter: 2015Q3

REPORT INFORMATION
  Report Type: Report from Study
  Country: US (occurrence: US)
  Receive Date: 20121015
  Receipt Date: 20150810
  Transmission Date: 20151125
  Serious: Yes (Death)
  Sender: FDA-Public Use
  Company Number: US-ROCHE-1111274

PATIENT
  Sex: Female
  Weight: 21 kg

DRUGS (5)
  1. NUTROPIN AQ [Suspect]
     Active Substance: SOMATROPIN
     Indication: DWARFISM
     Route: 058
  2. NUTROPIN AQ [Suspect]
     Active Substance: SOMATROPIN
     Indication: DIABETES MELLITUS
  3. INSULIN [Concomitant]
     Active Substance: INSULIN NOS
  4. NUTROPIN AQ [Suspect]
     Active Substance: SOMATROPIN
     Indication: GROWTH HORMONE DEFICIENCY
  5. NUTROPIN AQ [Suspect]
     Active Substance: SOMATROPIN
     Indication: CYSTIC FIBROSIS
     Route: 058

REACTIONS (4)
  - Weight decreased [Unknown]
  - Death [Fatal]
  - Pulmonary function test decreased [Unknown]
  - Off label use [Unknown]
